FAERS Safety Report 7890674 (Version 2)
Quarter: 2013Q1

REPORT INFORMATION
  Report Type: Spontaneous
  Country: US (occurrence: None)
  Receive Date: 20110316
  Receipt Date: 20130222
  Transmission Date: 20140127
  Serious: Yes (Hospitalization, Other)
  Sender: FDA-Public Use
  Company Number: ACO_22075_2011

PATIENT
  Age: 64 Year
  Sex: Female

DRUGS (13)
  1. AMPYRA [Suspect]
     Indication: PRODUCT USED FOR UNKNOWN INDICATION
     Dosage: 10 MG, DAILY
     Dates: start: 20110131, end: 20110213
  2. ZANAFLEX [Suspect]
     Indication: PRODUCT USED FOR UNKNOWN INDICATION
  3. METOPROLOL (METOPROLOL) [Concomitant]
  4. OXYBUTYNIN (OXYBUTYNIN) [Concomitant]
  5. DILTIAZEM [Concomitant]
  6. CALCIUM (CALCIUM) [Concomitant]
  7. VITAMIN E /00110501/ (TOCOPHEROL) [Concomitant]
  8. AMANTADINE HYDROCHLORIDE [Concomitant]
  9. SYNTHROID [Concomitant]
  10. ENALAPRIL [Concomitant]
  11. CENTRUM SILVER /01292501/  (ASCORBIC ACID, CALCIUM, MINERALS NOS, RETINOL, TOCOPHERYL ACETATE, VITAMIN B NOS, VITAMINS NOS, ZINC) [Concomitant]
  12. VITAMIN C /00008001/  (ASCORBIC ACID) [Concomitant]
  13. VITAMIN D /00107901/ ((ERGOCALCIFEROL) [Concomitant]

REACTIONS (14)
  - Syncope [None]
  - Adverse drug reaction [None]
  - Tremor [None]
  - Dyskinesia [None]
  - Muscle twitching [None]
  - Renal impairment [None]
  - Amnesia [None]
  - Urinary tract infection [None]
  - Inappropriate schedule of drug administration [None]
  - Arrhythmia [None]
  - Drug interaction [None]
  - Therapeutic response unexpected [None]
  - Convulsion [None]
  - Electroencephalogram abnormal [None]
